FAERS Safety Report 4708639-0 (Version None)
Quarter: 2005Q3

REPORT INFORMATION
  Report Type: 
  Country: None (occurrence: None)
  Receive Date: 20050705
  Receipt Date: 20050621
  Transmission Date: 20060218
  Serious: Yes (Hospitalization)
  Sender: FDA-Public Use
  Company Number: 2005-129813-NL

PATIENT
  Age: 70 Year
  Sex: Female

DRUGS (10)
  1. VECURONIUM BROMIDE [Suspect]
     Indication: INTUBATION
     Dosage: 4 MG ONCE/4 MG ONCE/8 MG ONCE
     Route: 042
     Dates: start: 20050221, end: 20050221
  2. VECURONIUM BROMIDE [Suspect]
     Indication: TRACHEOSTOMY
     Dosage: 4 MG ONCE/4 MG ONCE/8 MG ONCE
     Route: 042
     Dates: start: 20050221, end: 20050221
  3. VECURONIUM BROMIDE [Suspect]
     Indication: INTUBATION
     Dosage: 4 MG ONCE/4 MG ONCE/8 MG ONCE
     Route: 042
     Dates: start: 20050228, end: 20050228
  4. VECURONIUM BROMIDE [Suspect]
     Indication: TRACHEOSTOMY
     Dosage: 4 MG ONCE/4 MG ONCE/8 MG ONCE
     Route: 042
     Dates: start: 20050228, end: 20050228
  5. VECURONIUM BROMIDE [Suspect]
     Indication: INTUBATION
     Dosage: 4 MG ONCE/4 MG ONCE/8 MG ONCE
     Route: 042
     Dates: start: 20050307, end: 20050307
  6. VECURONIUM BROMIDE [Suspect]
     Indication: TRACHEOSTOMY
     Dosage: 4 MG ONCE/4 MG ONCE/8 MG ONCE
     Route: 042
     Dates: start: 20050307, end: 20050307
  7. BAKTAR [Concomitant]
  8. METHYLPREDNISOLONE SODIUM SUCCINATE [Concomitant]
  9. PREDNISOLONE [Concomitant]
  10. CYCLOPHOSPHAMIDE [Concomitant]

REACTIONS (6)
  - CARDIAC FAILURE [None]
  - HAEMOPTYSIS [None]
  - INFECTION [None]
  - LUNG DISORDER [None]
  - MYOPATHY [None]
  - QUADRIPLEGIA [None]
